FAERS Safety Report 10798319 (Version 2)
Quarter: 2015Q1

REPORT INFORMATION
  Report Type: Spontaneous
  Country: US (occurrence: US)
  Receive Date: 20150216
  Receipt Date: 20150305
  Transmission Date: 20150721
  Serious: No
  Sender: FDA-Public Use
  Company Number: US-009507513-1502USA006568

PATIENT
  Age: 72 Year
  Sex: Female

DRUGS (2)
  1. CLARITIN [Suspect]
     Active Substance: LORATADINE
     Indication: HYPERSENSITIVITY
     Dosage: 10 MG, QD
     Route: 048
     Dates: start: 20150201, end: 20150207
  2. CLARITIN [Suspect]
     Active Substance: LORATADINE
     Dosage: 10 MG, Q12H
     Route: 048
     Dates: start: 20150208, end: 20150214

REACTIONS (2)
  - Overdose [Unknown]
  - Drug effect decreased [Unknown]

NARRATIVE: CASE EVENT DATE: 20150201
